FAERS Safety Report 21368638 (Version 1)
Quarter: 2022Q3

REPORT INFORMATION
  Report Type: Spontaneous
  Country: DE (occurrence: DE)
  Receive Date: 20220923
  Receipt Date: 20220923
  Transmission Date: 20221027
  Serious: Yes (Hospitalization)
  Sender: FDA-Public Use
  Company Number: DE-NOVARTISPH-NVSC2022DE210366

PATIENT
  Age: 79 Year
  Sex: Male
  Weight: 78 kg

DRUGS (15)
  1. ASPIRIN [Suspect]
     Active Substance: ASPIRIN
     Indication: Product used for unknown indication
     Dosage: UNK (100 MG, 0-1-0-0)
     Route: 048
  2. FRAGMIN [Suspect]
     Active Substance: DALTEPARIN SODIUM
     Indication: Product used for unknown indication
     Dosage: UNK (7000 IE, 1-0-1-0, INJEKTIONS-/INFUSIONSL?SUNG)
     Route: 058
  3. CARVEDILOL [Concomitant]
     Active Substance: CARVEDILOL
     Indication: Product used for unknown indication
     Dosage: UNK (25 MG, 1-0-0-0)
     Route: 048
  4. FOSTER [Concomitant]
     Active Substance: BECLOMETHASONE\FORMOTEROL
     Indication: Product used for unknown indication
     Dosage: UNK (6|100 ?G, 2-0-2-0)
     Route: 048
  5. METAMIZOLE [Concomitant]
     Active Substance: METAMIZOLE
     Indication: Product used for unknown indication
     Dosage: UNK (500 MG, BEI BEDARF BIS ZU VIERMAL EINE TABLETTE PRO TAG)
     Route: 048
  6. RENNIE [Concomitant]
     Indication: Product used for unknown indication
     Dosage: UNK (680|80 MG, 0-1-1-0)
     Route: 048
  7. XIPAMIDE [Concomitant]
     Active Substance: XIPAMIDE
     Indication: Product used for unknown indication
     Dosage: UNK (40 MG, MONTAG MITTWOCH FREITAG SONNTAG JE EINE HALBE TABLETTE AM MORGEN)
     Route: 048
  8. ATORVASTATIN [Concomitant]
     Active Substance: ATORVASTATIN
     Indication: Product used for unknown indication
     Dosage: UNK (40 MG, 0-0-1-0)
     Route: 048
  9. PHENPROCOUMON [Concomitant]
     Active Substance: PHENPROCOUMON
     Indication: Product used for unknown indication
     Dosage: UNK (3 MG, MOMENTAN PAUSIERT ANSONSTEN JE NACH INR)
     Route: 048
  10. TRIMIPRAMINE [Concomitant]
     Active Substance: TRIMIPRAMINE
     Indication: Product used for unknown indication
     Dosage: UNK (25 MG, 0-0-0-1)
     Route: 048
  11. ALBUTEROL [Concomitant]
     Active Substance: ALBUTEROL
     Indication: Product used for unknown indication
     Dosage: UNK (BEI BEDARF BIS ZU DREIMAL ZWEI H?BE PRO TAG)
     Route: 048
  12. MELPERONE [Concomitant]
     Active Substance: MELPERONE
     Indication: Product used for unknown indication
     Dosage: UNK (25 MG, 0-0-1-0)
     Route: 048
  13. TORSEMIDE [Concomitant]
     Active Substance: TORSEMIDE
     Indication: Product used for unknown indication
     Dosage: UNK (200 MG, MONTAG MITTWOCH FREITAG SONNTAG JE EINE TABLETTE AM MORGEN)
     Route: 048
  14. ACETYLCYSTEINE [Concomitant]
     Active Substance: ACETYLCYSTEINE
     Indication: Product used for unknown indication
     Dosage: UNK (300 MG, 1-0-0-0, BRAUSETABLETTEN)
     Route: 048
  15. PANTOPRAZOLE [Concomitant]
     Active Substance: PANTOPRAZOLE
     Indication: Product used for unknown indication
     Dosage: UNK (20 MG, 1-0-0-0)
     Route: 048

REACTIONS (2)
  - Vascular access site dissection [Unknown]
  - Haematoma [Unknown]
